FAERS Safety Report 8578843-2 (Version None)
Quarter: 2012Q3

REPORT INFORMATION
  Report Type: 
  Country: None (occurrence: None)
  Receive Date: 20120808
  Receipt Date: 20120803
  Transmission Date: 20120928
  Serious: Yes (Hospitalization)
  Sender: FDA-Public Use
  Company Number: PHHY2012US067535

PATIENT
  Sex: Male

DRUGS (4)
  1. MYFORTIC [Suspect]
     Indication: RENAL TRANSPLANT
     Dosage: 720 MG, BID
     Route: 048
     Dates: start: 20120114
  2. PREDNISONE TAB [Suspect]
     Indication: RENAL TRANSPLANT
     Dosage: 5 MG, QD
     Dates: start: 20100916
  3. BELATACEPT [Suspect]
     Indication: RENAL TRANSPLANT
     Dosage: 435 MG, ONE MONTH
     Route: 042
     Dates: start: 20060802
  4. CRESTOR [Concomitant]

REACTIONS (5)
  - BUNDLE BRANCH BLOCK LEFT [None]
  - SEPSIS [None]
  - BLOOD CREATINE PHOSPHOKINASE INCREASED [None]
  - PYREXIA [None]
  - RENAL FAILURE ACUTE [None]
